FAERS Safety Report 10725880 (Version 1)
Quarter: 2015Q1

REPORT INFORMATION
  Report Type: Spontaneous
  Country: US (occurrence: US)
  Receive Date: 20150121
  Receipt Date: 20150121
  Transmission Date: 20150721
  Serious: Yes (Other)
  Sender: FDA-Public Use
  Company Number: US-BEH-2015047855

PATIENT
  Sex: Female

DRUGS (1)
  1. HIZENTRA [Suspect]
     Active Substance: HUMAN IMMUNOGLOBULIN G

REACTIONS (7)
  - Accident at home [Unknown]
  - Renal disorder [Unknown]
  - Blood pressure abnormal [Unknown]
  - Periorbital contusion [Unknown]
  - Facial bones fracture [Unknown]
  - Stress [Unknown]
  - Unevaluable event [Unknown]
